FAERS Safety Report 16899462 (Version 3)
Quarter: 2019Q4

REPORT INFORMATION
  Report Type: Spontaneous
  Country: CA (occurrence: CA)
  Receive Date: 20191009
  Receipt Date: 20191112
  Transmission Date: 20200122
  Serious: Yes (Death, Other)
  Sender: FDA-Public Use
  Company Number: CA-PFIZER INC-2018462970

PATIENT
  Age: 63 Year
  Sex: Female

DRUGS (1)
  1. SUTENT [Suspect]
     Active Substance: SUNITINIB MALATE
     Dosage: 50 MG, CYCLIC (DAILY FOR 14 DAYS THEN 7 DAYS OFF)
     Route: 048
     Dates: start: 20181114

REACTIONS (3)
  - Vomiting [Recovered/Resolved]
  - Neoplasm progression [Fatal]
  - Nausea [Unknown]

NARRATIVE: CASE EVENT DATE: 20181117
